FAERS Safety Report 6204386-7 (Version None)
Quarter: 2009Q2

REPORT INFORMATION
  Report Type: 
  Country: None (occurrence: None)
  Receive Date: 20090521
  Receipt Date: 20090512
  Transmission Date: 20091009
  Serious: Yes (Other)
  Sender: FDA-Public Use
  Company Number: 272695

PATIENT
  Age: 9 Year
  Sex: Female

DRUGS (8)
  1. VINCRISTINE [Suspect]
     Indication: LEUKAEMIA RECURRENT
     Dosage: 1.5 MG/M2, INTRAVENOUS
     Route: 042
     Dates: start: 20070615
  2. POSACONAZOLE [Suspect]
     Indication: ANTIFUNGAL PROPHYLAXIS
     Dosage: 50 MG, ORAL
     Route: 048
     Dates: start: 20070610, end: 20070701
  3. METHOTREXATE [Suspect]
     Indication: LEUKAEMIA RECURRENT
     Dosage: 12 MG, INTRATHECAL, 1000 MG/M2 INTRAVENOUS
     Route: 037
     Dates: start: 20070610, end: 20070610
  4. METHOTREXATE [Suspect]
     Indication: LEUKAEMIA RECURRENT
     Dosage: 12 MG, INTRATHECAL, 1000 MG/M2 INTRAVENOUS
     Route: 037
     Dates: start: 20070615
  5. CYTARABINE [Concomitant]
  6. PREDNISONE [Concomitant]
  7. DEXAMETHASONE [Concomitant]
  8. ASPARAGINASE [Concomitant]

REACTIONS (12)
  - BRAIN OEDEMA [None]
  - CONSTIPATION [None]
  - DRUG INTERACTION [None]
  - FUSARIUM INFECTION [None]
  - HYPOKALAEMIA [None]
  - HYPOPHOSPHATAEMIA [None]
  - INAPPROPRIATE ANTIDIURETIC HORMONE SECRETION [None]
  - LEUKAEMIA RECURRENT [None]
  - METABOLIC ENCEPHALOPATHY [None]
  - NEUROPATHY PERIPHERAL [None]
  - NEUROTOXICITY [None]
  - NEUTROPENIA [None]
